FAERS Safety Report 10406121 (Version 2)
Quarter: 2014Q4

REPORT INFORMATION
  Report Type: Spontaneous
  Country: JP (occurrence: JP)
  Receive Date: 20140825
  Receipt Date: 20141002
  Transmission Date: 20150528
  Serious: Yes (Hospitalization)
  Sender: FDA-Public Use
  Company Number: JP-PFIZER INC-2014231958

PATIENT
  Age: 52 Year
  Sex: Male

DRUGS (1)
  1. SILDENAFIL CITRATE. [Suspect]
     Active Substance: SILDENAFIL CITRATE
     Dosage: UNK

REACTIONS (4)
  - Disturbance in attention [Recovered/Resolved]
  - Nausea [Unknown]
  - Drug interaction [Recovering/Resolving]
  - Disorientation [Recovered/Resolved]

NARRATIVE: CASE EVENT DATE: 200710
